FAERS Safety Report 8139368 (Version 6)
Quarter: 2013Q1

REPORT INFORMATION
  Report Type: Report from Study
  Country: US (occurrence: US)
  Receive Date: 20110916
  Receipt Date: 20130222
  Transmission Date: 20140127
  Serious: Yes (Disabling, Other)
  Sender: FDA-Public Use
  Company Number: US-PFIZER INC-2011214283

PATIENT
  Age: 48 Year
  Sex: Female

DRUGS (5)
  1. GEODON [Suspect]
     Indication: TOURETTE^S DISORDER
     Dosage: 80 MG, 2X/DAY
     Route: 048
  2. GEODON [Suspect]
     Indication: BIPOLAR DISORDER
     Dosage: 60 MG, 2X/DAY
     Route: 048
  3. DEPAKOTE [Concomitant]
     Dosage: 2000, AT BEDTIME
  4. PROPANOLOL [Concomitant]
     Dosage: 20 MG, 3X/DAY
  5. ZOLPIDEM [Concomitant]
     Dosage: 10 MG, AT BEDTIME AS NEEDED

REACTIONS (2)
  - Bipolar disorder [Unknown]
  - Off label use [Unknown]
